FAERS Safety Report 24335062 (Version 2)
Quarter: 2024Q3

REPORT INFORMATION
  Report Type: Spontaneous
  Country: IT (occurrence: IT)
  Receive Date: 20240918
  Receipt Date: 20240923
  Transmission Date: 20241016
  Serious: Yes (Other)
  Sender: NOVARTIS
  Company Number: IT-002147023-NVSC2024IT179557

PATIENT
  Age: 58 Year
  Sex: Female

DRUGS (4)
  1. IMATINIB [Suspect]
     Active Substance: IMATINIB
     Indication: Gastrointestinal stromal tumour
     Dosage: 400 MG, QD, FIRST LINE TREATMENT
     Route: 065
     Dates: start: 201407, end: 201502
  2. IMATINIB [Suspect]
     Active Substance: IMATINIB
     Dosage: 200 MG, QD, RE-CHALLENGE TREATMENT
     Route: 065
     Dates: start: 202308
  3. SUNITINIB [Suspect]
     Active Substance: SUNITINIB
     Indication: Gastrointestinal stromal tumour
     Dosage: 25 MG, QD, SECOND-LINE TREATMENT
     Route: 065
     Dates: start: 201502, end: 201906
  4. SUNITINIB [Suspect]
     Active Substance: SUNITINIB
     Dosage: 12.5 MG, QD
     Route: 065

REACTIONS (3)
  - Neutropenia [Unknown]
  - Gastrointestinal stromal tumour [Unknown]
  - Malignant neoplasm progression [Unknown]
